FAERS Safety Report 7118579-8 (Version None)
Quarter: 2010Q4

REPORT INFORMATION
  Report Type: 
  Country: None (occurrence: None)
  Receive Date: 20101026
  Receipt Date: 20100816
  Transmission Date: 20110411
  Serious: Yes (Hospitalization)
  Sender: FDA-Public Use
  Company Number: 2010S1000321

PATIENT
  Sex: Male

DRUGS (1)
  1. ROXICODONE [Suspect]
     Dosage: PO
     Route: 048

REACTIONS (1)
  - OVERDOSE [None]
